FAERS Safety Report 9766269 (Version 2)
Quarter: 2014Q1

REPORT INFORMATION
  Report Type: Spontaneous
  Country: US (occurrence: US)
  Receive Date: 20131217
  Receipt Date: 20140101
  Transmission Date: 20141002
  Serious: No
  Sender: FDA-Public Use
  Company Number: US-BAYER-2013-154022

PATIENT
  Age: 75 Year
  Sex: Male
  Weight: 56.69 kg

DRUGS (4)
  1. MIDOL EXTENDED RELIEF CAPLET [Suspect]
     Dosage: 1 DF, OTHER
     Route: 048
     Dates: start: 20131203
  2. ZOCOR [Concomitant]
  3. LOMAX [ALBENDAZOLE] [Concomitant]
  4. SPIRIVA [Concomitant]

REACTIONS (1)
  - Pre-existing condition improved [None]
